FAERS Safety Report 18438649 (Version 1)
Quarter: 2020Q4

REPORT INFORMATION
  Report Type: Spontaneous
  Country: CN (occurrence: CN)
  Receive Date: 20201028
  Receipt Date: 20201028
  Transmission Date: 20210114
  Serious: Yes (Other)
  Sender: FDA-Public Use
  Company Number: CN-SA-2020SA300221

PATIENT

DRUGS (3)
  1. POTASSIUM CHLORIDE. [Concomitant]
     Active Substance: POTASSIUM CHLORIDE
     Indication: MINERAL SUPPLEMENTATION
     Dosage: 10 ML, BID
     Route: 041
     Dates: start: 20201010, end: 20201012
  2. APIDRA [Suspect]
     Active Substance: INSULIN GLULISINE
     Indication: POSTOPERATIVE CARE
     Dosage: 3 IU, QD
     Route: 058
     Dates: start: 20201011, end: 20201012
  3. INSULIN HUMAN NOS [Suspect]
     Active Substance: INSULIN HUMAN
     Indication: POSTOPERATIVE CARE
     Dosage: 6 IU, BID
     Route: 041
     Dates: start: 20201010, end: 20201012

REACTIONS (4)
  - Defect conduction intraventricular [Recovered/Resolved]
  - Atrial fibrillation [Recovered/Resolved]
  - Tachyarrhythmia [Recovered/Resolved]
  - Electrocardiogram ST segment abnormal [Recovered/Resolved]

NARRATIVE: CASE EVENT DATE: 20201011
